FAERS Safety Report 7981224 (Version 3)
Quarter: 2012Q4

REPORT INFORMATION
  Report Type: 
  Country: US (occurrence: US)
  Receive Date: 20110608
  Receipt Date: 20120913
  Transmission Date: 20130627
  Serious: Yes (Hospitalization)
  Sender: FDA-Public Use
  Company Number: US-UCBSA-033398

PATIENT
  Age: 46 Year
  Sex: Male
  Weight: 83.9 kg

DRUGS (2)
  1. KEPPRA XR [Suspect]
     Indication: EPILEPSY
     Dates: start: 2010
  2. DILANTIN [Concomitant]
     Indication: EPILEPSY
     Dates: start: 2002

REACTIONS (4)
  - Hip fracture [Recovered/Resolved with Sequelae]
  - Alcoholic seizure [Recovered/Resolved with Sequelae]
  - Fall [Recovered/Resolved with Sequelae]
  - Inappropriate schedule of drug administration [Unknown]
